FAERS Safety Report 21327411 (Version 1)
Quarter: 2022Q3

REPORT INFORMATION
  Report Type: Spontaneous
  Country: GB (occurrence: GB)
  Receive Date: 20220913
  Receipt Date: 20220913
  Transmission Date: 20221027
  Serious: No
  Sender: FDA-Public Use
  Company Number: None

PATIENT
  Sex: Female
  Weight: 89 kg

DRUGS (18)
  1. TOLVAPTAN [Suspect]
     Active Substance: TOLVAPTAN
     Indication: Congenital cystic kidney disease
     Dosage: 45 MILLIGRAM, TABLET (UNCOATED, ORAL)
     Route: 048
     Dates: start: 20191107
  2. TOLVAPTAN [Suspect]
     Active Substance: TOLVAPTAN
     Dosage: 60 MILLIGRAM,TABLET (UNCOATED, ORAL)
     Route: 048
     Dates: start: 20210518
  3. TOLVAPTAN [Suspect]
     Active Substance: TOLVAPTAN
     Dosage: 30 MILLIGRAM, TABLET (UNCOATED, ORAL)
     Route: 048
     Dates: start: 20211217
  4. TOLVAPTAN [Suspect]
     Active Substance: TOLVAPTAN
     Dosage: 60 MILLIGRAM, TABLET (UNCOATED, ORAL)
     Route: 048
     Dates: start: 20211217
  5. TOLVAPTAN [Suspect]
     Active Substance: TOLVAPTAN
     Dosage: 15 MILLIGRAM, TABLET (UNCOATED, ORAL)
     Route: 048
     Dates: start: 20191107
  6. TOLVAPTAN [Suspect]
     Active Substance: TOLVAPTAN
     Dosage: 90 MILLIGRAM
     Route: 048
     Dates: start: 20210819
  7. TOLVAPTAN [Suspect]
     Active Substance: TOLVAPTAN
     Dosage: 30 MILLIGRAM,TABLET (UNCOATED, ORAL)
     Route: 048
     Dates: start: 20200128
  8. TOLVAPTAN [Suspect]
     Active Substance: TOLVAPTAN
     Dosage: 90 MILLIGRAM, TABLET (UNCOATED, ORAL)
     Route: 048
     Dates: start: 20200225
  9. TOLVAPTAN [Suspect]
     Active Substance: TOLVAPTAN
     Dosage: 30 MILLIGRAM, TABLET (UNCOATED, ORAL)
     Route: 048
     Dates: start: 20200225
  10. TOLVAPTAN [Suspect]
     Active Substance: TOLVAPTAN
     Dosage: 90 MILLIGRAM
     Route: 048
     Dates: start: 20220311
  11. TOLVAPTAN [Suspect]
     Active Substance: TOLVAPTAN
     Dosage: 60 MILLIGRAM,TABLET (UNCOATED, ORAL)
     Route: 048
     Dates: start: 20200128
  12. TOLVAPTAN [Suspect]
     Active Substance: TOLVAPTAN
     Dosage: 30 MILLIGRAM,TABLET (UNCOATED, ORAL)
     Route: 048
     Dates: start: 20220311
  13. TOLVAPTAN [Suspect]
     Active Substance: TOLVAPTAN
     Dosage: 30 MILLIGRAM,TABLET (UNCOATED, ORAL)
     Route: 048
     Dates: start: 20210819
  14. TOLVAPTAN [Suspect]
     Active Substance: TOLVAPTAN
     Dosage: 30 MILLIGRAM,TABLET (UNCOATED, ORAL)
     Route: 048
     Dates: start: 20210518
  15. TOLVAPTAN [Suspect]
     Active Substance: TOLVAPTAN
     Dosage: 60 MILLIGRAM, TABLET (UNCOATED, ORAL)
     Route: 048
     Dates: start: 20210819
  16. TOLVAPTAN [Suspect]
     Active Substance: TOLVAPTAN
     Dosage: 60 MILLIGRAM, TABLET (UNCOATED, ORAL)
     Route: 048
     Dates: start: 20220311
  17. TOLVAPTAN [Suspect]
     Active Substance: TOLVAPTAN
     Dosage: 60 MILLIGRAM, TABLET (UNCOATED, ORAL)
     Route: 048
     Dates: start: 20220601
  18. TOLVAPTAN [Suspect]
     Active Substance: TOLVAPTAN
     Dosage: 30 MILLIGRAM, TABLET (UNCOATED, ORAL)
     Route: 048
     Dates: start: 20220601

REACTIONS (4)
  - Insomnia [Unknown]
  - Gout [Not Recovered/Not Resolved]
  - Nocturia [Not Recovered/Not Resolved]
  - Thirst [Not Recovered/Not Resolved]

NARRATIVE: CASE EVENT DATE: 20200225
